FAERS Safety Report 23670689 (Version 1)
Quarter: 2024Q1

REPORT INFORMATION
  Report Type: Report from Study
  Country: US (occurrence: US)
  Receive Date: 20240326
  Receipt Date: 20240326
  Transmission Date: 20240410
  Serious: Yes (Other)
  Sender: FDA-Public Use
  Company Number: US-BoehringerIngelheim-2022-BI-207961

PATIENT
  Age: 63 Year
  Sex: Female

DRUGS (3)
  1. OFEV [Suspect]
     Active Substance: NINTEDANIB
     Indication: Idiopathic pulmonary fibrosis
     Route: 048
     Dates: start: 20220903, end: 20230301
  2. OFEV [Suspect]
     Active Substance: NINTEDANIB
     Dosage: WITH FOOD
     Route: 048
  3. OFEV [Suspect]
     Active Substance: NINTEDANIB
     Route: 048

REACTIONS (10)
  - Idiopathic pulmonary fibrosis [Unknown]
  - Drug ineffective [Unknown]
  - Diarrhoea [Unknown]
  - Decreased appetite [Recovering/Resolving]
  - Diarrhoea [Recovered/Resolved with Sequelae]
  - Nausea [Recovered/Resolved with Sequelae]
  - Asthenia [Not Recovered/Not Resolved]
  - Restless legs syndrome [Not Recovered/Not Resolved]
  - Nervousness [Recovered/Resolved with Sequelae]
  - Nausea [Unknown]
